FAERS Safety Report 17565425 (Version 1)
Quarter: 2020Q1

REPORT INFORMATION
  Report Type: Spontaneous
  Country: US (occurrence: US)
  Receive Date: 20200320
  Receipt Date: 20200320
  Transmission Date: 20200409
  Serious: No
  Sender: FDA-Public Use
  Company Number: US-PFIZER INC-2020119842

PATIENT
  Age: 37 Year
  Sex: Female

DRUGS (1)
  1. XELJANZ XR [Suspect]
     Active Substance: TOFACITINIB CITRATE
     Indication: AXIAL SPONDYLOARTHRITIS
     Dosage: 11 MG, DAILY
     Route: 048
     Dates: start: 20200314

REACTIONS (5)
  - Decreased appetite [Unknown]
  - Off label use [Unknown]
  - Product use in unapproved indication [Unknown]
  - Muscle twitching [Unknown]
  - Fatigue [Unknown]

NARRATIVE: CASE EVENT DATE: 202003
